FAERS Safety Report 5027505-7 (Version None)
Quarter: 2006Q2

REPORT INFORMATION
  Report Type: 
  Country: None (occurrence: None)
  Receive Date: 20060501
  Receipt Date: 20060201
  Transmission Date: 20061013
  Serious: No
  Sender: FDA-Public Use
  Company Number: 2006PV007957

PATIENT
  Sex: Female

DRUGS (2)
  1. SYMLIN [Suspect]
     Indication: DIABETES MELLITUS INSULIN-DEPENDENT
     Dosage: 60 MCG;TID;SC
     Route: 058
     Dates: start: 20060111, end: 20060126
  2. INSULIN [Concomitant]

REACTIONS (4)
  - ABDOMINAL DISTENSION [None]
  - BLOOD GLUCOSE INCREASED [None]
  - INJECTION SITE ERYTHEMA [None]
  - INJECTION SITE PAIN [None]
